FAERS Safety Report 18641635 (Version 2)
Quarter: 2020Q4

REPORT INFORMATION
  Report Type: Report from Study
  Country: None (occurrence: US)
  Receive Date: 20201221
  Receipt Date: 20201223
  Transmission Date: 20210114
  Serious: Yes (Other)
  Sender: FDA-Public Use
  Company Number: US-ABBVIE-20K-163-3550667-00

PATIENT
  Age: 76 Year
  Sex: Female

DRUGS (2)
  1. HUMIRA [Suspect]
     Active Substance: ADALIMUMAB
     Indication: RHEUMATOID ARTHRITIS
     Route: 058
     Dates: start: 2020
  2. HUMIRA [Suspect]
     Active Substance: ADALIMUMAB
     Indication: PSORIATIC ARTHROPATHY
     Route: 058
     Dates: start: 20200806, end: 20200925

REACTIONS (26)
  - Wound complication [Unknown]
  - Hypoaesthesia [Not Recovered/Not Resolved]
  - Pain [Not Recovered/Not Resolved]
  - Peripheral swelling [Unknown]
  - Back pain [Unknown]
  - Sciatica [Recovering/Resolving]
  - Loss of personal independence in daily activities [Recovering/Resolving]
  - Foot deformity [Not Recovered/Not Resolved]
  - Musculoskeletal stiffness [Not Recovered/Not Resolved]
  - Acne [Recovering/Resolving]
  - Gait disturbance [Not Recovered/Not Resolved]
  - Erythema [Recovering/Resolving]
  - Joint range of motion decreased [Unknown]
  - Joint stiffness [Unknown]
  - Injection site haemorrhage [Recovering/Resolving]
  - Skin lesion [Unknown]
  - Anxiety [Recovering/Resolving]
  - Pain in extremity [Not Recovered/Not Resolved]
  - Herpes zoster [Recovered/Resolved]
  - Arthralgia [Unknown]
  - Mobility decreased [Unknown]
  - Paraesthesia [Not Recovered/Not Resolved]
  - Headache [Recovering/Resolving]
  - Impaired self-care [Recovering/Resolving]
  - Chromaturia [Unknown]
  - Pyrexia [Unknown]

NARRATIVE: CASE EVENT DATE: 2020
